FAERS Safety Report 9270832 (Version 2)
Quarter: 2013Q2

REPORT INFORMATION
  Report Type: Spontaneous
  Country: FR (occurrence: FR)
  Receive Date: 20130505
  Receipt Date: 20130521
  Transmission Date: 20140414
  Serious: Yes (Disabling)
  Sender: FDA-Public Use
  Company Number: FR-BRISTOL-MYERS SQUIBB COMPANY-18856369

PATIENT
  Age: 65 Year
  Sex: Female

DRUGS (3)
  1. METFORMIN HCL [Suspect]
     Indication: TYPE 2 DIABETES MELLITUS
     Route: 048
     Dates: start: 20121107, end: 20130124
  2. STAGID [Suspect]
     Indication: TYPE 2 DIABETES MELLITUS
     Dosage: 700MG TABLET
     Route: 048
     Dates: start: 20130124
  3. LYRICA [Suspect]
     Route: 048
     Dates: start: 20121108, end: 20121220

REACTIONS (3)
  - Anosmia [Not Recovered/Not Resolved]
  - Deafness [Not Recovered/Not Resolved]
  - Nausea [Not Recovered/Not Resolved]
